FAERS Safety Report 17450563 (Version 1)
Quarter: 2020Q1

REPORT INFORMATION
  Report Type: Spontaneous
  Country: CN (occurrence: CN)
  Receive Date: 20200224
  Receipt Date: 20200224
  Transmission Date: 20200409
  Serious: Yes (Other)
  Sender: FDA-Public Use
  Company Number: CN-BAXTER-2020BAX003754

PATIENT
  Age: 63 Year
  Sex: Female
  Weight: 48 kg

DRUGS (10)
  1. 0.9% SODIUM CHLORIDE INJECTION [Suspect]
     Active Substance: SODIUM CHLORIDE
     Dosage: FIRST CHEMOTHERAPY, NOVOSEVEN 40 MG + NS
     Route: 041
     Dates: start: 20191128
  2. PACLITAXEL. [Suspect]
     Active Substance: PACLITAXEL
     Indication: BREAST CANCER FEMALE
     Dosage: FIRST CHEMOTHERAPY, PACLITAXEL + NS 100 ML
     Route: 041
     Dates: start: 20191128
  3. 0.9% SODIUM CHLORIDE INJECTION [Suspect]
     Active Substance: SODIUM CHLORIDE
     Dosage: FIRST CHEMOTHERAPY, PACLITAXEL 300 MG + NS
     Route: 041
     Dates: start: 20191128
  4. PHARMORUBICIN [Suspect]
     Active Substance: EPIRUBICIN
     Indication: BREAST CANCER FEMALE
     Dosage: FIRST CHEMOTHERAPY, PHARMORUBICIN + NS 100 ML
     Route: 041
     Dates: start: 20191128, end: 20191128
  5. ENDOXAN [Suspect]
     Active Substance: CYCLOPHOSPHAMIDE
     Indication: BREAST CANCER FEMALE
     Dosage: FIRST CHEMOTHERAPY, ENDOXAN + NS 40 ML
     Route: 041
     Dates: start: 20191128, end: 20191128
  6. 0.9% SODIUM CHLORIDE INJECTION [Suspect]
     Active Substance: SODIUM CHLORIDE
     Dosage: FIRST CHEMOTHERAPY, NOXIN 40 MG + NS
     Route: 042
     Dates: start: 20191128
  7. NUO XIN (CISPLATIN) [Suspect]
     Active Substance: CISPLATIN
     Indication: BREAST CANCER FEMALE
     Dosage: FIRST CHEMOTHERAPY, NOXIN + NS 500 ML
     Route: 042
     Dates: start: 20191128
  8. NOVOSEVEN [Suspect]
     Active Substance: COAGULATION FACTOR VIIA RECOMBINANT HUMAN
     Indication: BREAST CANCER FEMALE
     Dosage: FIRST CHEMOTHERAPY, NOVOSEVEN + NS 500 ML
     Route: 041
     Dates: start: 20191128
  9. 0.9% SODIUM CHLORIDE INJECTION [Suspect]
     Active Substance: SODIUM CHLORIDE
     Indication: MEDICATION DILUTION
     Dosage: FIRST CHEMOTHERAPY, ENDOXAN 800 MG + NS
     Route: 041
     Dates: start: 20191128, end: 20191128
  10. 0.9% SODIUM CHLORIDE INJECTION [Suspect]
     Active Substance: SODIUM CHLORIDE
     Dosage: FIRST CHEMOTHERAPY, PHARMORUBICIN 115 MG + NS
     Route: 041
     Dates: start: 20191128, end: 20191128

REACTIONS (2)
  - Agranulocytosis [Recovered/Resolved]
  - White blood cell count decreased [Recovered/Resolved]

NARRATIVE: CASE EVENT DATE: 20191209
